FAERS Safety Report 8465563-8 (Version None)
Quarter: 2012Q2

REPORT INFORMATION
  Report Type: 
  Country: None (occurrence: None)
  Receive Date: 20120626
  Receipt Date: 20120612
  Transmission Date: 20120825
  Serious: Yes (Hospitalization)
  Sender: FDA-Public Use
  Company Number: FR-CELGENEUS-056-50794-12061826

PATIENT
  Sex: Female
  Weight: 70 kg

DRUGS (2)
  1. VIDAZA [Suspect]
     Route: 041
     Dates: start: 20120604, end: 20120608
  2. DEPAKENE [Suspect]
     Dosage: 2.5 GRAM
     Route: 048
     Dates: start: 20120604

REACTIONS (1)
  - LUNG DISORDER [None]
